FAERS Safety Report 8578512-9 (Version None)
Quarter: 2012Q3

REPORT INFORMATION
  Report Type: 
  Country: None (occurrence: None)
  Receive Date: 20120726
  Receipt Date: 20120716
  Transmission Date: 20120928
  Serious: Yes (Hospitalization)
  Sender: FDA-Public Use
  Company Number: UTC-021030

PATIENT
  Age: 76 Year
  Sex: Male
  Weight: 119.5 kg

DRUGS (2)
  1. ADCIRCA [Concomitant]
  2. TYVASO [Suspect]
     Indication: HYPERTENSION
     Dosage: 216 MCG (54 MCG, 4 IN 1 D) INHALATION
     Route: 055
     Dates: start: 20120602

REACTIONS (7)
  - OEDEMA PERIPHERAL [None]
  - FATIGUE [None]
  - DYSPNOEA [None]
  - LABORATORY TEST ABNORMAL [None]
  - PAIN IN EXTREMITY [None]
  - GOUT [None]
  - CONDITION AGGRAVATED [None]
